FAERS Safety Report 24856677 (Version 1)
Quarter: 2025Q1

REPORT INFORMATION
  Report Type: Spontaneous
  Country: US (occurrence: US)
  Receive Date: 20250117
  Receipt Date: 20250117
  Transmission Date: 20250409
  Serious: No
  Sender: BAYER HEALTHCARE PHARMACEUTICALS INC.
  Company Number: US-BAYER-2025A006276

PATIENT
  Age: 25 Year
  Sex: Female

DRUGS (3)
  1. KYLEENA [Suspect]
     Active Substance: LEVONORGESTREL
     Indication: Polycystic ovarian syndrome
     Dosage: 17.5?G/DAY
     Route: 015
     Dates: start: 202407, end: 20250108
  2. KYLEENA [Suspect]
     Active Substance: LEVONORGESTREL
     Indication: Dysmenorrhoea
  3. KYLEENA [Suspect]
     Active Substance: LEVONORGESTREL
     Indication: Product used for unknown indication

REACTIONS (2)
  - Complication associated with device [None]
  - Product prescribing issue [None]

NARRATIVE: CASE EVENT DATE: 20240701
